FAERS Safety Report 12283054 (Version 1)
Quarter: 2016Q2

REPORT INFORMATION
  Report Type: Spontaneous
  Country: US (occurrence: US)
  Receive Date: 20160419
  Receipt Date: 20160419
  Transmission Date: 20160815
  Serious: Yes (Death, Life-Threatening, Other)
  Sender: FDA-Public Use
  Company Number: US-ELI_LILLY_AND_COMPANY-US201604004659

PATIENT
  Sex: Male

DRUGS (1)
  1. TRULICITY [Suspect]
     Active Substance: DULAGLUTIDE
     Indication: TYPE 2 DIABETES MELLITUS
     Dosage: 0.75 MG, WEEKLY (1/W)
     Route: 065
     Dates: start: 20160212, end: 20160305

REACTIONS (10)
  - Pruritus [Unknown]
  - Cerebrovascular accident [Unknown]
  - Weight decreased [Unknown]
  - Abdominal pain upper [Unknown]
  - Cardiac arrest [Unknown]
  - Brain oedema [Unknown]
  - Renal failure [Unknown]
  - Hepatic failure [Unknown]
  - Death [Fatal]
  - Decreased appetite [Unknown]

NARRATIVE: CASE EVENT DATE: 20160227
